FAERS Safety Report 7318930-X (Version None)
Quarter: 2011Q1

REPORT INFORMATION
  Report Type: 
  Country: None (occurrence: None)
  Receive Date: 20110228
  Receipt Date: 20110215
  Transmission Date: 20110831
  Serious: Yes (Hospitalization, Other)
  Sender: FDA-Public Use
  Company Number: US-ELI_LILLY_AND_COMPANY-US201011000271

PATIENT
  Sex: Female

DRUGS (17)
  1. WARFARIN SODIUM [Concomitant]
     Dosage: AMOUNT VARIES ACCORDING TO BLOOD TEST, UNKNOWN
     Route: 065
  2. OMEPRAZOLE [Concomitant]
     Dosage: 20 MG, 2/D
     Route: 065
  3. CITRACAL-D [Concomitant]
     Dosage: UNK, 2/D
     Route: 065
  4. CENTRUM [Concomitant]
     Dosage: UNK, DAILY (1/D)
     Route: 065
  5. FORTEO [Suspect]
     Dosage: 20 UG, DAILY (1/D)
     Dates: start: 20100915
  6. POTASSIUM CHLORIDE [Concomitant]
     Dosage: 10 MEQ, UNKNOWN
     Route: 065
  7. ASCORBIC ACID [Concomitant]
     Dosage: 500 MG, 3/D
     Route: 065
  8. FORTEO [Suspect]
     Indication: OSTEOPOROSIS
     Dosage: 20 UG, DAILY (1/D)
     Dates: start: 20091201
  9. VITAMIN E [Concomitant]
     Dosage: 400 IU, 3/W
     Route: 065
  10. LEVOTHYROXINE SODIUM [Concomitant]
     Dosage: 50 UG, DAILY (1/D)
     Route: 065
  11. MULTIVITAMIN [Concomitant]
     Dosage: UNK, DAILY (1/D)
     Route: 065
  12. TRIAMCINOLONE ACETONIDE [Concomitant]
     Dosage: 0.1 %, 2/W
  13. ASACOL [Concomitant]
     Dosage: 800 MG, 2/D
     Route: 065
  14. FUROSEMIDE [Concomitant]
     Dosage: 40 MG, DAILY (1/D)
     Route: 065
  15. VITAMIN D [Concomitant]
     Dosage: UNK, MONTHLY (1/M)
     Route: 065
  16. RAMIPRIL [Concomitant]
     Dosage: 5 MG, DAILY (1/D)
     Route: 065
  17. CLOBETASOL PROPIONATE [Concomitant]
     Dosage: 0.05 %, DAILY (1/D)
     Route: 065

REACTIONS (5)
  - MYALGIA [None]
  - NAUSEA [None]
  - MUSCULAR WEAKNESS [None]
  - INJECTION SITE PAIN [None]
  - FALL [None]
